FAERS Safety Report 5084653-3 (Version None)
Quarter: 2006Q3

REPORT INFORMATION
  Report Type: 
  Country: None (occurrence: None)
  Receive Date: 20060818
  Receipt Date: 20060818
  Transmission Date: 20061208
  Serious: No
  Sender: FDA-Public Use
  Company Number: None

PATIENT
  Age: 77 Year
  Sex: Male
  Weight: 83.9154 kg

DRUGS (5)
  1. DURAMORPH PF [Suspect]
     Indication: PROCEDURAL PAIN
     Dosage: 200 MCG
     Dates: start: 20060815, end: 20060815
  2. GLUCOPHAGE [Concomitant]
  3. CELEXA [Concomitant]
  4. GLIPIZIDE [Concomitant]
  5. PROPRANALOL [Concomitant]

REACTIONS (1)
  - PRURITUS [None]
